FAERS Safety Report 14699889 (Version 2)
Quarter: 2018Q2

REPORT INFORMATION
  Report Type: Spontaneous
  Country: SI (occurrence: SI)
  Receive Date: 20180330
  Receipt Date: 20180413
  Transmission Date: 20180711
  Serious: Yes (Other)
  Sender: FDA-Public Use
  Company Number: SI-MYLANLABS-2018M1019295

PATIENT
  Sex: Female

DRUGS (1)
  1. PARICALCITOL. [Suspect]
     Active Substance: PARICALCITOL
     Indication: FABRY^S DISEASE
     Dosage: UNK

REACTIONS (3)
  - Off label use [Unknown]
  - Cardiac dysfunction [Unknown]
  - Renal impairment [Unknown]
